FAERS Safety Report 10253297 (Version 1)
Quarter: 2014Q2

REPORT INFORMATION
  Report Type: Spontaneous
  Country: US (occurrence: US)
  Receive Date: 20140623
  Receipt Date: 20140623
  Transmission Date: 20141212
  Serious: No
  Sender: FDA-Public Use
  Company Number: US-SHIONOGI, INC-2014000164

PATIENT
  Sex: 0

DRUGS (1)
  1. OSPHENA [Suspect]
     Indication: DYSPAREUNIA
     Dosage: 60 MG, QD
     Route: 048
     Dates: start: 20140225

REACTIONS (4)
  - Peripheral swelling [Unknown]
  - Skin discolouration [Unknown]
  - Arthralgia [Unknown]
  - Joint swelling [Unknown]
